FAERS Safety Report 9530420 (Version 2)
Quarter: 2013Q3

REPORT INFORMATION
  Report Type: Spontaneous
  Country: US (occurrence: US)
  Receive Date: 20130918
  Receipt Date: 20130924
  Transmission Date: 20140515
  Serious: Yes (Death)
  Sender: FDA-Public Use
  Company Number: US-ROCHE-1277461

PATIENT
  Sex: Female

DRUGS (1)
  1. XELODA [Suspect]
     Indication: ANAL CANCER
     Dosage: 2 WEEKS ON, 1 WEEK OFF
     Route: 048
     Dates: start: 20130621

REACTIONS (1)
  - Colon cancer [Fatal]
